FAERS Safety Report 4513064-1 (Version None)
Quarter: 2004Q4

REPORT INFORMATION
  Report Type: 
  Country: None (occurrence: None)
  Receive Date: 20040928
  Receipt Date: 20040709
  Transmission Date: 20050328
  Serious: No
  Sender: FDA-Public Use
  Company Number: 04P-163-0266742-00

PATIENT
  Age: 57 Year
  Sex: Female

DRUGS (4)
  1. HUMIRA [Suspect]
     Indication: RHEUMATOID ARTHRITIS
     Dosage: 40 MG, 1 IN 2 WK, SUBCUTANEOUS
     Route: 058
     Dates: start: 20040601, end: 20040701
  2. BUCINDOLOL HYDROCHLORIDE [Concomitant]
  3. PARACETAMOL [Concomitant]
  4. TRAMADOL HCL [Concomitant]

REACTIONS (3)
  - ASTHENIA [None]
  - INJECTION SITE BURNING [None]
  - PARALYSIS [None]
